FAERS Safety Report 4396022-X (Version None)
Quarter: 2004Q3

REPORT INFORMATION
  Report Type: 
  Country: None (occurrence: None)
  Receive Date: 20040709
  Receipt Date: 20040630
  Transmission Date: 20050211
  Serious: Yes (Other)
  Sender: FDA-Public Use
  Company Number: 2004044358

PATIENT
  Sex: Male

DRUGS (1)
  1. NEURONTIN [Suspect]
     Indication: ILL-DEFINED DISORDER
     Dosage: 300  MG (100 MG, 3 IN 1 D)

REACTIONS (2)
  - PRURITUS [None]
  - UNEXPECTED THERAPEUTIC DRUG EFFECT [None]
